FAERS Safety Report 6194103-1 (Version None)
Quarter: 2009Q2

REPORT INFORMATION
  Report Type: 
  Country: None (occurrence: None)
  Receive Date: 20090518
  Receipt Date: 20090511
  Transmission Date: 20091009
  Serious: Yes (Other)
  Sender: FDA-Public Use
  Company Number: PHEH2009US04615

PATIENT
  Sex: Female
  Weight: 53.515 kg

DRUGS (4)
  1. RECLAST [Suspect]
     Indication: OSTEOPOROSIS
     Dosage: UNK ONCE YEARLY
     Dates: start: 20090318, end: 20090318
  2. LUMIGAN [Concomitant]
     Route: 031
  3. CALCIUM [Concomitant]
  4. VITAMINS [Concomitant]

REACTIONS (7)
  - BLOOD PRESSURE INCREASED [None]
  - CHEST PAIN [None]
  - HEART RATE IRREGULAR [None]
  - INFLUENZA LIKE ILLNESS [None]
  - MYALGIA [None]
  - PALPITATIONS [None]
  - PERICARDIAL EFFUSION [None]
